FAERS Safety Report 8271486-X (Version None)
Quarter: 2012Q2

REPORT INFORMATION
  Report Type: 
  Country: None (occurrence: None)
  Receive Date: 20120410
  Receipt Date: 20120405
  Transmission Date: 20120825
  Serious: Yes (Death)
  Sender: FDA-Public Use
  Company Number: NO-FRI-1000029460

PATIENT
  Age: 64 Year
  Sex: Female

DRUGS (7)
  1. AMITRIPTYLINE HCL [Suspect]
  2. DIAZEPAM [Suspect]
  3. MIANSERIN                          /00390602/ [Suspect]
  4. NITRAZEPAM [Suspect]
  5. ACETAMINOPHEN W/ CODEINE [Suspect]
     Route: 048
  6. ZOLPIDEM [Suspect]
  7. CITALOPRAM HYDROBROMIDE [Suspect]

REACTIONS (2)
  - OVERDOSE [None]
  - TOXICITY TO VARIOUS AGENTS [None]
